FAERS Safety Report 10490489 (Version 3)
Quarter: 2015Q1

REPORT INFORMATION
  Report Type: Spontaneous
  Country: US (occurrence: US)
  Receive Date: 20141002
  Receipt Date: 20150105
  Transmission Date: 20150720
  Serious: No
  Sender: FDA-Public Use
  Company Number: US-PFIZER INC-2014268421

PATIENT

DRUGS (4)
  1. KLONOPIN [Concomitant]
     Active Substance: CLONAZEPAM
     Dosage: UNK
  2. DEPAKOTE [Concomitant]
     Active Substance: DIVALPROEX SODIUM
     Dosage: UNK
  3. BOSULIF [Suspect]
     Active Substance: BOSUTINIB MONOHYDRATE
     Indication: CHRONIC MYELOID LEUKAEMIA
     Dosage: UNK
     Dates: start: 20141120
  4. RISPERIDONE. [Concomitant]
     Active Substance: RISPERIDONE
     Dosage: UNK

REACTIONS (2)
  - Disease progression [Not Recovered/Not Resolved]
  - Chronic myeloid leukaemia [Not Recovered/Not Resolved]
